FAERS Safety Report 9128461 (Version 1)
Quarter: 2013Q1

REPORT INFORMATION
  Report Type: Spontaneous
  Country: US (occurrence: US)
  Receive Date: 20130228
  Receipt Date: 20130228
  Transmission Date: 20140127
  Serious: No
  Sender: FDA-Public Use
  Company Number: US-GLAXOSMITHKLINE-A0991118A

PATIENT
  Age: 46 Year
  Sex: Female

DRUGS (5)
  1. SUMATRIPTAN SUCCINATE [Suspect]
     Indication: MIGRAINE
     Dosage: 6MG AS REQUIRED
     Route: 048
     Dates: start: 2008
  2. PROZAC [Concomitant]
  3. DILTIAZEM [Concomitant]
  4. TRAZODONE [Concomitant]
  5. AMBIEN [Concomitant]

REACTIONS (4)
  - Injection site bruising [Not Recovered/Not Resolved]
  - Hypoaesthesia [Unknown]
  - Muscular weakness [Unknown]
  - Induration [Unknown]
